FAERS Safety Report 15580209 (Version 1)
Quarter: 2018Q4

REPORT INFORMATION
  Report Type: Spontaneous
  Country: US (occurrence: US)
  Receive Date: 20181101
  Receipt Date: 20181101
  Transmission Date: 20190205
  Serious: Yes (Disabling)
  Sender: FDA-Public Use
  Company Number: None

PATIENT
  Age: 48 Year
  Sex: Female
  Weight: 122.92 kg

DRUGS (1)
  1. MRI CONTRAST [Suspect]
     Active Substance: UNSPECIFIED INGREDIENT

REACTIONS (3)
  - Muscle spasms [None]
  - Muscle tightness [None]
  - Muscle twitching [None]

NARRATIVE: CASE EVENT DATE: 20170301
